FAERS Safety Report 6143427-2 (Version None)
Quarter: 2009Q2

REPORT INFORMATION
  Report Type: 
  Country: None (occurrence: None)
  Receive Date: 20090403
  Receipt Date: 20090324
  Transmission Date: 20091009
  Serious: Yes (Other)
  Sender: FDA-Public Use
  Company Number: ES-ABBOTT-09P-144-0564104-00

PATIENT
  Sex: Male

DRUGS (1)
  1. PANTOMICINA SUSPENSION [Suspect]
     Indication: DRUG USE FOR UNKNOWN INDICATION
     Route: 048
     Dates: start: 20090301, end: 20090301

REACTIONS (3)
  - DERMATITIS ALLERGIC [None]
  - HYPOTENSION [None]
  - RESPIRATORY DISORDER [None]
